FAERS Safety Report 10231642 (Version 5)
Quarter: 2015Q2

REPORT INFORMATION
  Report Type: Report from Study
  Country: CA (occurrence: CA)
  Receive Date: 20140611
  Receipt Date: 20150404
  Transmission Date: 20150821
  Serious: Yes (Hospitalization, Other)
  Sender: FDA-Public Use
  Company Number: PHHY2012CA036601

PATIENT
  Age: 55 Year
  Sex: Female

DRUGS (3)
  1. SANDOSTATIN LAR DEPOT [Suspect]
     Active Substance: OCTREOTIDE ACETATE
     Indication: CARCINOID SYNDROME
     Dosage: 20 MG, EVERY 4 WEEKS
     Route: 030
     Dates: start: 20111122
  2. SANDOSTATIN LAR DEPOT [Suspect]
     Active Substance: OCTREOTIDE ACETATE
     Dosage: 30 MG, EVERY 4 WEEKS
     Route: 030
     Dates: start: 20130906
  3. SANDOSTATIN LAR DEPOT [Suspect]
     Active Substance: OCTREOTIDE ACETATE
     Dosage: 20 MG,EVERY 4 WEEKS
     Route: 030
     Dates: end: 2014

REACTIONS (12)
  - Constipation [Unknown]
  - Drug ineffective [Unknown]
  - Tremor [Unknown]
  - Diarrhoea [Unknown]
  - Dysgeusia [Unknown]
  - Stress [Unknown]
  - Transient global amnesia [Unknown]
  - Cholelithiasis [Recovered/Resolved]
  - Hypoglycaemia [Unknown]
  - Dizziness [Unknown]
  - Chest pain [Recovered/Resolved]
  - Depression [Unknown]

NARRATIVE: CASE EVENT DATE: 20120505
